FAERS Safety Report 8447745-4 (Version None)
Quarter: 2012Q2

REPORT INFORMATION
  Report Type: 
  Country: None (occurrence: None)
  Receive Date: 20120619
  Receipt Date: 20120608
  Transmission Date: 20120825
  Serious: Yes (Hospitalization)
  Sender: FDA-Public Use
  Company Number: FR-SANOFI-AVENTIS-2012SA041247

PATIENT
  Age: 88 Year
  Sex: Female

DRUGS (11)
  1. LASIX [Suspect]
     Dosage: LONG-TERM THERAPY.
     Route: 048
     Dates: end: 20110630
  2. ZOLPIDEM TARTRATE [Concomitant]
     Dosage: LONG-TERM THERAPY.
     Route: 048
  3. ASPIRIN [Concomitant]
     Dosage: LONG-TERM THERAPY.
     Route: 048
  4. LEVOTHYROXINE SODIUM [Concomitant]
     Dosage: LONG-TERM THERAPY.
     Route: 048
  5. CORDARONE [Concomitant]
     Route: 048
     Dates: start: 20101112, end: 20120207
  6. NEBIVOLOL [Suspect]
     Dosage: LONG-TERM THERAPY.
     Route: 048
     Dates: end: 20110630
  7. LERCANIDIPINE [Suspect]
     Dosage: LONG-TERM THERAPY.
     Route: 048
     Dates: end: 20110625
  8. SPIRONOLACTONE [Concomitant]
     Dosage: LONG-TERM THERAPY.
     Route: 048
  9. FOLIC ACID [Concomitant]
     Dosage: LONG-TERM THERAPY.
     Route: 048
  10. CITALOPRAM HYDROBROMIDE [Concomitant]
     Dosage: LONG-TERM THERAPY.
     Route: 048
  11. RABEPRAZOLE SODIUM [Concomitant]
     Dosage: LONG-TERM THERAPY.
     Route: 048

REACTIONS (3)
  - BALANCE DISORDER [None]
  - HYPOTENSION [None]
  - DYSPNOEA [None]
